FAERS Safety Report 8290827-0 (Version None)
Quarter: 2012Q2

REPORT INFORMATION
  Report Type: 
  Country: None (occurrence: None)
  Receive Date: 20120417
  Receipt Date: 20120123
  Transmission Date: 20120825
  Serious: No
  Sender: FDA-Public Use
  Company Number: US-BRISTOL-MYERS SQUIBB COMPANY-16364127

PATIENT

DRUGS (1)
  1. HYDREA [Suspect]
     Dosage: ORAL SOLUTION
     Route: 048

REACTIONS (1)
  - DRUG ADMINISTRATION ERROR [None]
